FAERS Safety Report 10018372 (Version 1)
Quarter: 2014Q1

REPORT INFORMATION
  Report Type: Spontaneous
  Country: US (occurrence: None)
  Receive Date: 20140314
  Receipt Date: 20140314
  Transmission Date: 20141002
  Serious: Yes (Life-Threatening, Hospitalization, Disabling)
  Sender: FDA-Public Use
  Company Number: None

PATIENT
  Age: 45 Year
  Sex: Female
  Weight: 88.91 kg

DRUGS (2)
  1. PRIVIGEN [Suspect]
     Indication: PRIMARY IMMUNODEFICIENCY SYNDROME
     Dosage: 1 30G AND 1 10G BOTTLE?EVERY 28 DAYS?INTO A VEIN
     Route: 042
     Dates: start: 20130712, end: 20131218
  2. PRIVIGEN [Suspect]
     Indication: IMMUNODEFICIENCY COMMON VARIABLE
     Dosage: 1 30G AND 1 10G BOTTLE?EVERY 28 DAYS?INTO A VEIN
     Route: 042
     Dates: start: 20130712, end: 20131218

REACTIONS (6)
  - Meningitis aseptic [None]
  - Cluster headache [None]
  - Hyperacusis [None]
  - Nausea [None]
  - Vomiting [None]
  - Photophobia [None]
